FAERS Safety Report 7889678-8 (Version None)
Quarter: 2011Q4

REPORT INFORMATION
  Report Type: 
  Country: None (occurrence: None)
  Receive Date: 20111103
  Receipt Date: 20111031
  Transmission Date: 20120403
  Serious: Yes (Hospitalization)
  Sender: FDA-Public Use
  Company Number: IT-BAYER-2011-105997

PATIENT
  Age: 34 Year
  Sex: Male

DRUGS (1)
  1. ULTRAVIST 150 [Suspect]
     Indication: COMPUTERISED TOMOGRAM
     Dosage: 120 ML, ONCE
     Route: 042
     Dates: start: 20111025, end: 20111025

REACTIONS (6)
  - LARYNGEAL OEDEMA [None]
  - CARDIAC ENZYMES NORMAL [None]
  - DYSPNOEA [None]
  - CHEST PAIN [None]
  - FACE OEDEMA [None]
  - BUNDLE BRANCH BLOCK RIGHT [None]
